FAERS Safety Report 19160550 (Version 1)
Quarter: 2021Q2

REPORT INFORMATION
  Report Type: Spontaneous
  Country: US (occurrence: US)
  Receive Date: 20210420
  Receipt Date: 20210420
  Transmission Date: 20210717
  Serious: Yes (Hospitalization, Other)
  Sender: FDA-Public Use
  Company Number: US-HORIZON THERAPEUTICS-HZN-2021-001706

PATIENT

DRUGS (1)
  1. TEPEZZA [Suspect]
     Active Substance: TEPROTUMUMAB-TRBW
     Indication: ENDOCRINE OPHTHALMOPATHY
     Dosage: UNK
     Route: 065
     Dates: start: 2020

REACTIONS (9)
  - Retinal oedema [Unknown]
  - Bone pain [Unknown]
  - Myalgia [Unknown]
  - Headache [Unknown]
  - Cataract [Unknown]
  - Visual impairment [Unknown]
  - Abdominal discomfort [Unknown]
  - Osteoporosis [Unknown]
  - Blood glucose increased [Unknown]
